FAERS Safety Report 19096686 (Version 1)
Quarter: 2021Q2

REPORT INFORMATION
  Report Type: Spontaneous
  Country: US (occurrence: US)
  Receive Date: 20210405
  Receipt Date: 20210405
  Transmission Date: 20210717
  Serious: Yes (Hospitalization, Other)
  Sender: FDA-Public Use
  Company Number: None

PATIENT
  Age: 59 Year
  Sex: Male
  Weight: 115.7 kg

DRUGS (3)
  1. CYTOXAN [Concomitant]
     Active Substance: CYCLOPHOSPHAMIDE
     Dates: start: 20201014, end: 20201016
  2. FLUDARABINE [Concomitant]
     Active Substance: FLUDARABINE PHOSPHATE
     Dates: start: 20201014, end: 20201016
  3. TECARTUS [Suspect]
     Active Substance: BREXUCABTAGENE AUTOLEUCEL
     Indication: MANTLE CELL LYMPHOMA
     Dosage: ?          OTHER FREQUENCY:ONCE;?
     Route: 042
     Dates: start: 20201019, end: 20201019

REACTIONS (9)
  - Confusional state [None]
  - Neurotoxicity [None]
  - Chills [None]
  - Aphasia [None]
  - Neutropenia [None]
  - Cytokine release syndrome [None]
  - Tremor [None]
  - Pyrexia [None]
  - Encephalopathy [None]

NARRATIVE: CASE EVENT DATE: 20201020
